FAERS Safety Report 8386481-X (Version None)
Quarter: 2012Q2

REPORT INFORMATION
  Report Type: 
  Country: None (occurrence: None)
  Receive Date: 20120523
  Receipt Date: 20120510
  Transmission Date: 20120825
  Serious: Yes (Hospitalization, Other)
  Sender: FDA-Public Use
  Company Number: AUR-APL-2009-00069

PATIENT
  Age: 79 Year
  Sex: Female

DRUGS (2)
  1. METFORMIN HCL [Suspect]
     Indication: TYPE 2 DIABETES MELLITUS
     Dosage: 1500 MG (1500 MG, 1 D), ORAL
     Route: 048
     Dates: start: 20070101, end: 20090501
  2. LORTAAN (LOSARTAN POTASSIUM) [Concomitant]

REACTIONS (3)
  - LACTIC ACIDOSIS [None]
  - HAEMODIALYSIS [None]
  - RENAL FAILURE ACUTE [None]
